FAERS Safety Report 10424081 (Version 1)
Quarter: 2014Q3

REPORT INFORMATION
  Report Type: Spontaneous
  Country: US (occurrence: None)
  Receive Date: 20140730
  Receipt Date: 20140730
  Transmission Date: 20150326
  Serious: No
  Sender: FDA-Public Use
  Company Number: NVUS1600-14-00015

PATIENT
  Age: 43 Year
  Sex: Female

DRUGS (1)
  1. LYMPHOSEEK [Suspect]
     Active Substance: TECHNETIUM TC-99M TILMANOCEPT
     Indication: LYMPHATIC MAPPING
     Dosage: 1 IN, INTRADERMAL
     Dates: start: 20140411, end: 20140411

REACTIONS (1)
  - Injection site pain [None]

NARRATIVE: CASE EVENT DATE: 20140411
